FAERS Safety Report 6759767-X (Version None)
Quarter: 2010Q2

REPORT INFORMATION
  Report Type: 
  Country: None (occurrence: None)
  Receive Date: 20100608
  Receipt Date: 20100601
  Transmission Date: 20101027
  Serious: Yes (Other)
  Sender: FDA-Public Use
  Company Number: JP-JNJFOC-20100405813

PATIENT
  Sex: Male

DRUGS (7)
  1. LOPEMIN [Suspect]
     Indication: DRUG USE FOR UNKNOWN INDICATION
     Route: 048
  2. UNKNOWN MEDICATION [Suspect]
     Indication: DRUG USE FOR UNKNOWN INDICATION
     Route: 065
  3. TAKEPRON [Concomitant]
     Route: 065
  4. ITRIZOLE [Concomitant]
     Route: 065
  5. ZYLORIC [Concomitant]
     Route: 048
  6. COTRIM [Concomitant]
     Route: 048
  7. ZOVIRAX [Concomitant]
     Route: 065

REACTIONS (1)
  - INTRAOCULAR PRESSURE INCREASED [None]
